FAERS Safety Report 5006462-3 (Version None)
Quarter: 2006Q2

REPORT INFORMATION
  Report Type: 
  Country: None (occurrence: None)
  Receive Date: 20060516
  Receipt Date: 20060428
  Transmission Date: 20061013
  Serious: Yes (Other)
  Sender: FDA-Public Use
  Company Number: ES200604000859

PATIENT
  Sex: Female

DRUGS (8)
  1. CYMBALTA [Suspect]
     Indication: DEPRESSION
     Dosage: SEE IMAGE
     Route: 065
     Dates: start: 20060302, end: 20060316
  2. ZYPREXA [Suspect]
     Indication: PSYCHOTIC DISORDER
     Dosage: UNK
     Route: 065
  3. VENLAFAXINE HCL [Concomitant]
  4. TRAZODONE HCL [Concomitant]
  5. LUDIOMIL [Concomitant]
  6. DIAZEPAM [Concomitant]
  7. LEVOTHROID [Concomitant]
  8. PLATELET AGGREGATION INHIBITORS [Concomitant]

REACTIONS (2)
  - DRUG TOXICITY [None]
  - GRANULOCYTOSIS [None]
